FAERS Safety Report 24453151 (Version 2)
Quarter: 2024Q4

REPORT INFORMATION
  Report Type: Report from Study
  Country: CA (occurrence: CA)
  Receive Date: 20241017
  Receipt Date: 20241018
  Transmission Date: 20250115
  Serious: No
  Sender: ROCHE
  Company Number: CA-ROCHE-3064870

PATIENT
  Sex: Female

DRUGS (5)
  1. RITUXAN [Suspect]
     Active Substance: RITUXIMAB
     Indication: Rheumatoid arthritis
     Dosage: NO PIRS ARE AVAILABLE. DOSE NOTED ACCORDING TO PRESCRIPTIONS RECEIVED?LAST INFUSION WAS ADMINISTERED
     Route: 042
     Dates: start: 20180625, end: 20201222
  2. RITUXAN [Suspect]
     Active Substance: RITUXIMAB
     Route: 042
     Dates: start: 20210409
  3. ADVIL [Concomitant]
     Active Substance: IBUPROFEN
  4. MORPHINE [Concomitant]
     Active Substance: MORPHINE
  5. SOLU-MEDROL [Concomitant]
     Active Substance: METHYLPREDNISOLONE SODIUM SUCCINATE
     Indication: Premedication
     Dosage: DRUG DOSE FIRST ADMINISTERED IS 100 MG MILLIGRAM(S)
     Route: 042
     Dates: start: 20210409

REACTIONS (2)
  - Off label use [Unknown]
  - Arthralgia [Unknown]
